FAERS Safety Report 22641630 (Version 1)
Quarter: 2023Q2

REPORT INFORMATION
  Report Type: Report from Study
  Country: CN (occurrence: CN)
  Receive Date: 20230626
  Receipt Date: 20230626
  Transmission Date: 20230721
  Serious: Yes (Hospitalization)
  Sender: FDA-Public Use
  Company Number: CN-PFM-2023-03501

PATIENT
  Age: 56 Year
  Sex: Female
  Weight: 53.5 kg

DRUGS (10)
  1. ENCORAFENIB [Suspect]
     Active Substance: ENCORAFENIB
     Indication: Non-small cell lung cancer metastatic
     Dosage: 450 MG, QD (1/DAY)
     Route: 048
     Dates: start: 20221102, end: 20230615
  2. BINIMETINIB [Suspect]
     Active Substance: BINIMETINIB
     Indication: Non-small cell lung cancer metastatic
     Dosage: 45 MG, BID (2/DAY)
     Route: 048
     Dates: start: 20221102, end: 20230615
  3. METOPROLOL SUCCINATE [Concomitant]
     Active Substance: METOPROLOL SUCCINATE
     Indication: Atrial fibrillation
     Dosage: 4.75 MG, QD (1/DAY)
     Route: 048
     Dates: start: 202210
  4. LEVOTHYROXINE SODIUM [Concomitant]
     Active Substance: LEVOTHYROXINE SODIUM
     Indication: Hypothyroidism
     Dosage: 50 UG, QD (1/DAY)
     Route: 048
     Dates: start: 2007
  5. BENZBROMARONE [Concomitant]
     Active Substance: BENZBROMARONE
     Indication: Hyperuricaemia
     Dosage: 50 MG, PRN (AS NEEDED)
     Route: 048
     Dates: start: 2017
  6. WARFARIN SODIUM [Concomitant]
     Active Substance: WARFARIN SODIUM
     Indication: Investigation
     Dosage: 25 MG, THE FIRST DAY, THE SECOND DAY
     Route: 048
     Dates: start: 2003
  7. WARFARIN SODIUM [Concomitant]
     Active Substance: WARFARIN SODIUM
     Dosage: 31.25 MG, DIET TRET
     Route: 048
     Dates: start: 2003
  8. METFORMIN HYDROCHLORIDE [Concomitant]
     Active Substance: METFORMIN HYDROCHLORIDE
     Indication: Type 2 diabetes mellitus
     Dosage: 0.25 G, QD (1/DAY)
     Route: 048
     Dates: start: 2022
  9. GLICLAZIDE [Concomitant]
     Active Substance: GLICLAZIDE
     Indication: Type 2 diabetes mellitus
     Dosage: 30 MG, QD (1/DAY)
     Route: 048
     Dates: start: 2022
  10. AMIODARONE HYDROCHLORIDE [Concomitant]
     Active Substance: AMIODARONE HYDROCHLORIDE
     Indication: Atrial fibrillation
     Dosage: 1 PILL,QD
     Route: 048
     Dates: start: 20230303

REACTIONS (1)
  - Cardiac failure [Not Recovered/Not Resolved]

NARRATIVE: CASE EVENT DATE: 20230616
